FAERS Safety Report 6908289-1 (Version None)
Quarter: 2010Q3

REPORT INFORMATION
  Report Type: 
  Country: None (occurrence: None)
  Receive Date: 20100805
  Receipt Date: 20100803
  Transmission Date: 20110219
  Serious: Yes (Other)
  Sender: FDA-Public Use
  Company Number: US-BRISTOL-MYERS SQUIBB COMPANY-15223282

PATIENT
  Age: 50 Year
  Sex: Male

DRUGS (2)
  1. ERBITUX [Suspect]
  2. ANTIBIOTICS [Concomitant]

REACTIONS (2)
  - HERNIA [None]
  - SKIN DISORDER [None]
